FAERS Safety Report 8125709-8 (Version None)
Quarter: 2012Q1

REPORT INFORMATION
  Report Type: 
  Country: None (occurrence: None)
  Receive Date: 20120206
  Receipt Date: 20120202
  Transmission Date: 20120608
  Serious: Yes (Death, Hospitalization)
  Sender: FDA-Public Use
  Company Number: 2012SP006147

PATIENT
  Age: 31 Year
  Sex: Male
  Weight: 77 kg

DRUGS (9)
  1. MAGMITT [Concomitant]
  2. BETAMETHASONE [Concomitant]
  3. NASEA OD DECADRON /00016002/ [Concomitant]
  4. GLYCEREB (CONCENTRATED GLYCERIN/FRUCTOSE) [Concomitant]
  5. TEMODAL [Suspect]
     Indication: ANAPLASTIC ASTROCYTOMA
     Dosage: 75 MG/M2;QD;PO, 150 MG/M2;QD;PO, 200 MG/M2;QD;PO
     Route: 048
     Dates: start: 20091028, end: 20091214
  6. TEMODAL [Suspect]
     Indication: ANAPLASTIC ASTROCYTOMA
     Dosage: 75 MG/M2;QD;PO, 150 MG/M2;QD;PO, 200 MG/M2;QD;PO
     Route: 048
     Dates: start: 20101222, end: 20110123
  7. TEMODAL [Suspect]
     Indication: ANAPLASTIC ASTROCYTOMA
     Dosage: 75 MG/M2;QD;PO, 150 MG/M2;QD;PO, 200 MG/M2;QD;PO
     Route: 048
     Dates: start: 20100113, end: 20100829
  8. FAMOSTAGINE [Concomitant]
  9. PHENOBARBITAL TAB [Concomitant]

REACTIONS (2)
  - EXTRADURAL ABSCESS [None]
  - DISEASE PROGRESSION [None]
